FAERS Safety Report 5192109-2 (Version None)
Quarter: 2006Q4

REPORT INFORMATION
  Report Type: 
  Country: None (occurrence: None)
  Receive Date: 20061221
  Receipt Date: 20061221
  Transmission Date: 20070319
  Serious: Yes (Hospitalization)
  Sender: FDA-Public Use
  Company Number: None

PATIENT
  Age: 51 Year
  Sex: Female
  Weight: 90 kg

DRUGS (1)
  1. AVASTIN [Suspect]
     Dosage: 900 MG Q2WEEKS IV
     Route: 042

REACTIONS (2)
  - DYSPNOEA [None]
  - PNEUMOTHORAX [None]
